FAERS Safety Report 6805149-1 (Version None)
Quarter: 2010Q2

REPORT INFORMATION
  Report Type: 
  Country: None (occurrence: None)
  Receive Date: 20100628
  Receipt Date: 20070913
  Transmission Date: 20101027
  Serious: No
  Sender: FDA-Public Use
  Company Number: US-PFIZER INC-2007077459

PATIENT
  Sex: Male
  Weight: 106.81 kg

DRUGS (1)
  1. CADUET [Suspect]
     Indication: HYPERTENSION
     Route: 048
     Dates: start: 20070701

REACTIONS (1)
  - ACTIVITIES OF DAILY LIVING IMPAIRED [None]
